FAERS Safety Report 14089220 (Version 1)
Quarter: 2017Q4

REPORT INFORMATION
  Report Type: Spontaneous
  Country: US (occurrence: US)
  Receive Date: 20171013
  Receipt Date: 20171013
  Transmission Date: 20180321
  Serious: Yes (Hospitalization)
  Sender: FDA-Public Use
  Company Number: US-VIFOR (INTERNATIONAL) INC.-VIT-2017-10240

PATIENT
  Age: 63 Year
  Sex: Female

DRUGS (15)
  1. VELTASSA [Suspect]
     Active Substance: PATIROMER
     Indication: HYPERKALAEMIA
     Route: 048
     Dates: start: 20161217
  2. CHLORTALIDONE [Concomitant]
     Active Substance: CHLORTHALIDONE
  3. APIDRA [Concomitant]
     Active Substance: INSULIN GLULISINE
  4. FUROSEMIDE. [Concomitant]
     Active Substance: FUROSEMIDE
  5. MINOXIDIL. [Concomitant]
     Active Substance: MINOXIDIL
  6. NIFEDIPINE. [Concomitant]
     Active Substance: NIFEDIPINE
  7. BUMETANIDE. [Concomitant]
     Active Substance: BUMETANIDE
  8. ISOSORBIDE DINITRATE. [Concomitant]
     Active Substance: ISOSORBIDE DINITRATE
  9. NOVOLIN [Concomitant]
     Active Substance: INSULIN HUMAN
  10. LYRICA [Concomitant]
     Active Substance: PREGABALIN
  11. METOLAZONE. [Concomitant]
     Active Substance: METOLAZONE
  12. PERCOCET [Concomitant]
     Active Substance: ACETAMINOPHEN\OXYCODONE HYDROCHLORIDE
  13. HYDRALAZINE HYDROCHLORIDE. [Concomitant]
     Active Substance: HYDRALAZINE HYDROCHLORIDE
  14. ACETYLSALICYLIC ACID [Concomitant]
     Active Substance: ASPIRIN
  15. NORVASC [Concomitant]
     Active Substance: AMLODIPINE BESYLATE

REACTIONS (1)
  - Pneumonia [Unknown]

NARRATIVE: CASE EVENT DATE: 201708
